FAERS Safety Report 18556756 (Version 1)
Quarter: 2020Q4

REPORT INFORMATION
  Report Type: Report from Study
  Country: AR (occurrence: AR)
  Receive Date: 20201128
  Receipt Date: 20201128
  Transmission Date: 20210114
  Serious: Yes (Other)
  Sender: FDA-Public Use
  Company Number: NVSC2020AR311972

PATIENT
  Age: 77 Year
  Sex: Female

DRUGS (1)
  1. KISQALI [Suspect]
     Active Substance: RIBOCICLIB
     Indication: BREAST CANCER METASTATIC
     Dosage: 600 MG, QD (CAPSULE)
     Route: 048
     Dates: start: 20191101

REACTIONS (1)
  - Wrist fracture [Unknown]

NARRATIVE: CASE EVENT DATE: 20201102
